FAERS Safety Report 19858838 (Version 1)
Quarter: 2021Q3

REPORT INFORMATION
  Report Type: Spontaneous
  Country: US (occurrence: US)
  Receive Date: 20210921
  Receipt Date: 20210921
  Transmission Date: 20211014
  Serious: Yes (Other)
  Sender: FDA-Public Use
  Company Number: US-CIPLA LTD.-2021US06266

PATIENT

DRUGS (1)
  1. WARFARIN [Suspect]
     Active Substance: WARFARIN
     Indication: ATRIAL FIBRILLATION
     Dosage: UNK
     Route: 065

REACTIONS (5)
  - Delayed ischaemic neurological deficit [Unknown]
  - Complex regional pain syndrome [Unknown]
  - Haematoma [Unknown]
  - Compartment syndrome [Recovered/Resolved with Sequelae]
  - International normalised ratio increased [Unknown]
